FAERS Safety Report 5343323-4 (Version None)
Quarter: 2007Q2

REPORT INFORMATION
  Report Type: 
  Country: None (occurrence: None)
  Receive Date: 20070502
  Receipt Date: 20060704
  Transmission Date: 20071010
  Serious: Yes (Other)
  Sender: FDA-Public Use
  Company Number: PHEH2006US08650

PATIENT
  Sex: Male

DRUGS (1)
  1. LOTREL [Suspect]
     Dosage: 10/20 MG, ORAL
     Route: 048
     Dates: start: 20040101

REACTIONS (2)
  - BLOOD PRESSURE INADEQUATELY CONTROLLED [None]
  - MYOCARDIAL INFARCTION [None]
